FAERS Safety Report 24282694 (Version 1)
Quarter: 2024Q3

REPORT INFORMATION
  Report Type: Report from Study
  Country: US (occurrence: None)
  Receive Date: 20240904
  Receipt Date: 20240904
  Transmission Date: 20241017
  Serious: Yes (Other)
  Sender: ASTRAZENECA
  Company Number: 2024A196946

PATIENT
  Sex: Male

DRUGS (1)
  1. TEZSPIRE [Suspect]
     Active Substance: TEZEPELUMAB-EKKO

REACTIONS (10)
  - Cerebrovascular accident [Unknown]
  - Staphylococcal infection [Unknown]
  - Obesity [Unknown]
  - Nasal polyps [Unknown]
  - Chronic sinusitis [Unknown]
  - Asthma [Unknown]
  - Bronchiectasis [Unknown]
  - Osteoarthritis [Unknown]
  - Back pain [Unknown]
  - Headache [Unknown]
